FAERS Safety Report 16626846 (Version 1)
Quarter: 2019Q3

REPORT INFORMATION
  Report Type: Spontaneous
  Country: US (occurrence: US)
  Receive Date: 20190724
  Receipt Date: 20190724
  Transmission Date: 20191004
  Serious: No
  Sender: FDA-Public Use
  Company Number: US-SA-2019SA197100

PATIENT
  Sex: Female

DRUGS (12)
  1. KEVZARA [Suspect]
     Active Substance: SARILUMAB
     Dosage: 200 MG, QOW
     Route: 058
  2. METOLAZONE. [Concomitant]
     Active Substance: METOLAZONE
  3. NITROGLYCERIN. [Concomitant]
     Active Substance: NITROGLYCERIN
  4. DIGOX [DIGOXIN] [Concomitant]
  5. LEVEMIR [Concomitant]
     Active Substance: INSULIN DETEMIR
  6. METOPROLOL. [Concomitant]
     Active Substance: METOPROLOL
  7. FUROSEMIDE. [Concomitant]
     Active Substance: FUROSEMIDE
  8. PERCOCET [Concomitant]
     Active Substance: ACETAMINOPHEN\OXYCODONE HYDROCHLORIDE
  9. ENTRESTO [Concomitant]
     Active Substance: SACUBITRIL\VALSARTAN
  10. ISOSORBIDE. [Concomitant]
     Active Substance: ISOSORBIDE
  11. NOVOLOG [Concomitant]
     Active Substance: INSULIN ASPART
  12. PREDNISONE. [Concomitant]
     Active Substance: PREDNISONE

REACTIONS (1)
  - Product dose omission [Unknown]
